FAERS Safety Report 20363740 (Version 2)
Quarter: 2022Q1

REPORT INFORMATION
  Report Type: Spontaneous
  Country: FR (occurrence: FR)
  Receive Date: 20220121
  Receipt Date: 20220209
  Transmission Date: 20220424
  Serious: Yes (Other)
  Sender: FDA-Public Use
  Company Number: FR-TEVA-2022-FR-1999681

PATIENT
  Sex: Male

DRUGS (1)
  1. COPAXONE [Suspect]
     Active Substance: GLATIRAMER ACETATE
     Indication: Product used for unknown indication
     Dates: start: 202003

REACTIONS (6)
  - Spinal cord injury [Unknown]
  - General physical health deterioration [Unknown]
  - Frostbite [Unknown]
  - Drug ineffective [Unknown]
  - Product prescribing error [Unknown]
  - General physical condition abnormal [Unknown]
